FAERS Safety Report 8045902-2 (Version None)
Quarter: 2012Q1

REPORT INFORMATION
  Report Type: 
  Country: None (occurrence: None)
  Receive Date: 20120113
  Receipt Date: 20111020
  Transmission Date: 20120608
  Serious: Yes (Other)
  Sender: FDA-Public Use
  Company Number: MX-GLAXOSMITHKLINE-A0961019A

PATIENT
  Sex: Male

DRUGS (7)
  1. EXELON [Concomitant]
     Dosage: 1PAT PER DAY
     Route: 062
     Dates: start: 20110528, end: 20111001
  2. VITAMIN [Concomitant]
     Dosage: 1TAB PER DAY
     Route: 048
  3. ASPIRIN [Concomitant]
     Dosage: 1TAB PER DAY
     Route: 048
  4. PAROXETINE HCL [Suspect]
     Indication: DEPRESSION
     Dosage: 20MGD PER DAY
     Route: 048
     Dates: start: 20110528
  5. TRILEPTAL [Concomitant]
     Dosage: 2TAB PER DAY
     Route: 048
     Dates: start: 20110528
  6. KETOROLAC TROMETHAMINE [Concomitant]
  7. OLANZAPINE [Concomitant]

REACTIONS (6)
  - AGGRESSION [None]
  - MEMORY IMPAIRMENT [None]
  - NERVOUS SYSTEM DISORDER [None]
  - HEADACHE [None]
  - SOMNOLENCE [None]
  - NERVOUSNESS [None]
